FAERS Safety Report 5130323-2 (Version None)
Quarter: 2006Q4

REPORT INFORMATION
  Report Type: 
  Country: None (occurrence: None)
  Receive Date: 20061019
  Receipt Date: 20060926
  Transmission Date: 20070319
  Serious: Yes (Hospitalization)
  Sender: FDA-Public Use
  Company Number: US-AMGEN-US194898

PATIENT
  Sex: Female
  Weight: 138.5 kg

DRUGS (18)
  1. ENBREL [Suspect]
     Indication: RHEUMATOID ARTHRITIS
     Route: 058
     Dates: start: 20050201
  2. METHOTREXATE [Concomitant]
     Route: 048
     Dates: start: 20050101
  3. LEUCOVORIN CALCIUM [Concomitant]
  4. KLONOPIN [Concomitant]
  5. LEXAPRO [Concomitant]
  6. LIPITOR [Concomitant]
  7. LASIX [Concomitant]
  8. PREDNISONE TAB [Concomitant]
  9. GLUCOPHAGE [Concomitant]
  10. AMITRIPTYLINE HCL [Concomitant]
  11. ALTACE [Concomitant]
  12. MORPHINE [Concomitant]
  13. ZYRTEC [Concomitant]
  14. SINGULAIR [Concomitant]
  15. CALCIUM GLUCONATE [Concomitant]
  16. CENTRUM SILVER [Concomitant]
  17. CITRACAL [Concomitant]
  18. ASPIRIN [Concomitant]

REACTIONS (4)
  - INFECTED SKIN ULCER [None]
  - NAUSEA [None]
  - OSTEOARTHRITIS [None]
  - SKIN INFECTION [None]
